FAERS Safety Report 25520470 (Version 2)
Quarter: 2025Q3

REPORT INFORMATION
  Report Type: Spontaneous
  Country: US (occurrence: US)
  Receive Date: 20250704
  Receipt Date: 20250804
  Transmission Date: 20251020
  Serious: No
  Sender: CSL BEHRING
  Company Number: US-BEH-2025211179

PATIENT
  Age: 5 Year
  Sex: Female

DRUGS (4)
  1. HIZENTRA [Suspect]
     Active Substance: HUMAN IMMUNOGLOBULIN G
     Indication: Humoral immune defect
     Dosage: 2 G, QW
     Route: 058
     Dates: start: 202506
  2. HIZENTRA [Suspect]
     Active Substance: HUMAN IMMUNOGLOBULIN G
     Route: 065
     Dates: start: 20250715
  3. ILARIS [Concomitant]
     Active Substance: CANAKINUMAB
  4. EPINEPHRINE [Concomitant]
     Active Substance: EPINEPHRINE

REACTIONS (3)
  - Headache [Unknown]
  - Decreased appetite [Unknown]
  - Swelling [Unknown]

NARRATIVE: CASE EVENT DATE: 20250715
